FAERS Safety Report 6879381-5 (Version None)
Quarter: 2010Q3

REPORT INFORMATION
  Report Type: 
  Country: None (occurrence: None)
  Receive Date: 20100728
  Receipt Date: 20100713
  Transmission Date: 20110219
  Serious: Yes (Other)
  Sender: FDA-Public Use
  Company Number: HU-ELI_LILLY_AND_COMPANY-HU201007002730

PATIENT
  Sex: Male
  Weight: 56 kg

DRUGS (11)
  1. GEMCITABINE HCL [Suspect]
     Indication: NON-SMALL CELL LUNG CANCER
     Dosage: 1971 MG 2 IN 3 WEEKS
     Route: 042
     Dates: start: 20100427, end: 20100630
  2. CISPLATIN [Suspect]
     Indication: NON-SMALL CELL LUNG CANCER
     Dosage: 120 MG 1 IN 3 WEEKS
     Route: 042
     Dates: start: 20100427, end: 20100630
  3. PANTOPRAZOLE SODIUM [Concomitant]
     Indication: GASTROOESOPHAGEAL REFLUX DISEASE
     Dates: start: 20100128
  4. PANCREATIN [Concomitant]
     Dates: start: 20100128
  5. CERUCAL [Concomitant]
     Indication: VOMITING
     Dates: start: 20100128
  6. FUROSEMIDE [Concomitant]
     Indication: HYPERTENSION
     Dates: start: 20100128
  7. POTASSIUM [Concomitant]
     Indication: HYPERTENSION
     Dates: start: 20100128
  8. FRONTIN [Concomitant]
     Indication: ANXIETY
     Dates: start: 20100128
  9. SPIRONOLACTONE [Concomitant]
     Indication: HYPERTENSION
     Dates: start: 20100128
  10. FORMOTEROL [Concomitant]
     Indication: DYSPNOEA
     Dates: start: 20100426
  11. ALFETIM [Concomitant]
     Indication: BENIGN PROSTATIC HYPERPLASIA
     Dates: start: 20100201

REACTIONS (1)
  - HYPOMAGNESAEMIA [None]
